FAERS Safety Report 12137416 (Version 1)
Quarter: 2016Q1

REPORT INFORMATION
  Report Type: Report from Study
  Country: US (occurrence: US)
  Receive Date: 20160302
  Receipt Date: 20160302
  Transmission Date: 20160526
  Serious: Yes (Hospitalization, Other)
  Sender: FDA-Public Use
  Company Number: US-MALLINCKRODT-T201600559

PATIENT
  Age: 44 Year
  Sex: Male

DRUGS (1)
  1. REPOSITORY CORTICOTROPIN INJECTION [Suspect]
     Active Substance: CORTICOTROPIN
     Indication: PROTEINURIA
     Dosage: 80U 2X/WEEK
     Route: 058
     Dates: start: 20151203, end: 20160208

REACTIONS (6)
  - Coma [Recovered/Resolved]
  - Swelling [Unknown]
  - Amnesia [Not Recovered/Not Resolved]
  - Seizure [Unknown]
  - Blood glucose decreased [Unknown]
  - Blood pressure increased [Unknown]

NARRATIVE: CASE EVENT DATE: 201602
